FAERS Safety Report 8141235-4 (Version None)
Quarter: 2012Q1

REPORT INFORMATION
  Report Type: 
  Country: None (occurrence: None)
  Receive Date: 20120216
  Receipt Date: 20120210
  Transmission Date: 20120608
  Serious: Yes (Hospitalization)
  Sender: FDA-Public Use
  Company Number: US-BAYER-2011-096658

PATIENT
  Age: 30 Year
  Sex: Female
  Weight: 122.45 kg

DRUGS (8)
  1. YAZ [Suspect]
     Indication: CONTRACEPTION
     Dosage: UNK
     Dates: start: 20060101, end: 20090101
  2. YASMIN [Suspect]
     Indication: CONTRACEPTION
     Dosage: UNK
     Dates: start: 20060101, end: 20090101
  3. MULTI-VITAMIN [Concomitant]
     Route: 048
  4. FLONASE [Concomitant]
     Indication: SEASONAL ALLERGY
     Dosage: UNK UNK, PRN
     Route: 061
  5. NAPROXEN (ALEVE) [Concomitant]
     Indication: PAIN
     Dosage: 500 MG, PRN
     Route: 048
  6. METFORMIN HCL [Concomitant]
     Dosage: 500 MG, BID
     Route: 048
  7. VALTREX [Concomitant]
     Dosage: UNK UNK, QD
     Route: 048
  8. ACETAMINOPHEN [Concomitant]
     Indication: PAIN
     Dosage: 650 MG, PRN

REACTIONS (5)
  - ANXIETY [None]
  - PULMONARY EMBOLISM [None]
  - PAIN [None]
  - ANHEDONIA [None]
  - INJURY [None]
